FAERS Safety Report 17410037 (Version 1)
Quarter: 2020Q1

REPORT INFORMATION
  Report Type: Spontaneous
  Country: IT (occurrence: IT)
  Receive Date: 20200212
  Receipt Date: 20200212
  Transmission Date: 20200409
  Serious: Yes (Hospitalization)
  Sender: FDA-Public Use
  Company Number: IT-PFIZER INC-2020061744

PATIENT
  Sex: Female
  Weight: 56 kg

DRUGS (11)
  1. SAMYR [ADEMETIONINE DISULFATE DITOSYLATE] [Concomitant]
     Dosage: 400 MG, UNK
     Route: 048
  2. PANTORC [Concomitant]
     Active Substance: PANTOPRAZOLE SODIUM
     Dosage: 40 MG, UNK
     Route: 048
  3. DELTACORTENE [Concomitant]
     Active Substance: PREDNISONE
     Dosage: 25 MG, UNK
     Route: 048
  4. TRIMETON [Concomitant]
     Active Substance: CHLORPHENIRAMINE MALEATE
     Dosage: 10 MG, UNK
     Route: 042
  5. KYTRIL [Concomitant]
     Active Substance: GRANISETRON HYDROCHLORIDE
     Dosage: 3 MG, UNK
     Route: 042
  6. ACCOFIL [Concomitant]
     Active Substance: FILGRASTIM
     Dosage: 30 IU, UNK
     Route: 058
  7. CARBOPLATINO PFIZER ITALIA [Suspect]
     Active Substance: CARBOPLATIN
     Indication: OVARIAN NEOPLASM
     Dosage: 260 MG, CYCLIC
     Route: 042
     Dates: start: 20191119, end: 20191210
  8. PLASIL [METOCLOPRAMIDE] [Concomitant]
     Dosage: 10 MG, UNK
     Route: 048
  9. LYRICA [Concomitant]
     Active Substance: PREGABALIN
     Dosage: 25 MG, UNK
     Route: 048
  10. PACLITAXEL ACCORD [Concomitant]
     Active Substance: PACLITAXEL
     Dosage: 95 MG, UNK
     Route: 042
  11. DESAMETASONE FOSF [DEXAMETHASONE PHOSPHATE] [Concomitant]
     Dosage: 12 MG, UNK
     Route: 042

REACTIONS (8)
  - Dyspnoea [Recovering/Resolving]
  - Loss of consciousness [Recovering/Resolving]
  - Paraesthesia oral [Recovering/Resolving]
  - Paraesthesia [Recovering/Resolving]
  - Mydriasis [Recovering/Resolving]
  - Angioedema [Recovering/Resolving]
  - Hypotension [Recovering/Resolving]
  - Aphasia [Recovering/Resolving]

NARRATIVE: CASE EVENT DATE: 20191210
